FAERS Safety Report 19952678 (Version 2)
Quarter: 2021Q4

REPORT INFORMATION
  Report Type: Spontaneous
  Country: SE (occurrence: SE)
  Receive Date: 20211014
  Receipt Date: 20211117
  Transmission Date: 20220303
  Serious: Yes (Hospitalization)
  Sender: FDA-Public Use
  Company Number: None

PATIENT
  Age: 17 Year
  Sex: Female

DRUGS (9)
  1. QUETIAPINE [Suspect]
     Active Substance: QUETIAPINE
     Indication: Sleep disorder
     Dosage: 25 MG
     Route: 048
     Dates: start: 2020, end: 20210915
  2. ESCITALOPRAM [Suspect]
     Active Substance: ESCITALOPRAM OXALATE
     Indication: Depression
     Dosage: 15 MG
     Route: 048
     Dates: start: 20191107, end: 20210915
  3. QUETIAPINE [Suspect]
     Active Substance: QUETIAPINE
     Indication: Intentional self-injury
     Dosage: 50 MILLIGRAM DAILY;
     Route: 048
     Dates: start: 202012, end: 20210915
  4. QUETIAPINE [Suspect]
     Active Substance: QUETIAPINE
     Indication: Sleep disorder
  5. NEXPLANON [Concomitant]
     Active Substance: ETONOGESTREL
     Dosage: 68 MG
  6. MELATONIN AGB [Concomitant]
     Dosage: 15 MILLIGRAM DAILY;
     Route: 048
  7. SERETIDE [Concomitant]
     Active Substance: FLUTICASONE PROPIONATE\SALMETEROL XINAFOATE
     Dosage: 50 MICROGRAMS / 250 MICROGRAMS / DOSE 1X2 , DIVIDED DOSE
     Route: 055
  8. PANTOPRAZOLE SODIUM [Concomitant]
     Active Substance: PANTOPRAZOLE SODIUM
     Dosage: 20 MILLIGRAM DAILY; ENTEROTABLET
     Route: 048
  9. ALBUTEROL SULFATE [Concomitant]
     Active Substance: ALBUTEROL SULFATE
     Dosage: 0.2 MG / DOSE 1 VB, DIVIDED DOSE
     Route: 055

REACTIONS (2)
  - Peroneal nerve palsy [Recovered/Resolved with Sequelae]
  - Rhabdomyolysis [Recovered/Resolved with Sequelae]

NARRATIVE: CASE EVENT DATE: 20210912
